FAERS Safety Report 13638446 (Version 1)
Quarter: 2017Q2

REPORT INFORMATION
  Report Type: Spontaneous
  Country: TW (occurrence: TW)
  Receive Date: 20170609
  Receipt Date: 20170609
  Transmission Date: 20170830
  Serious: Yes (Death, Other)
  Sender: FDA-Public Use
  Company Number: TW-SA-2017SA102725

PATIENT
  Age: 72 Year
  Sex: Male

DRUGS (3)
  1. ZOLPIDEM [Suspect]
     Active Substance: ZOLPIDEM\ZOLPIDEM TARTRATE
     Indication: SLEEP DISORDER
     Route: 048
     Dates: start: 2014, end: 2016
  2. LORAZEPAM. [Suspect]
     Active Substance: LORAZEPAM
     Indication: SLEEP DISORDER
     Route: 065
     Dates: start: 2014, end: 2016
  3. NITRAZEPAM [Suspect]
     Active Substance: NITRAZEPAM
     Indication: SLEEP DISORDER
     Route: 065
     Dates: start: 2014, end: 2016

REACTIONS (8)
  - Renal cyst [Unknown]
  - Cardiogenic shock [Fatal]
  - Interstitial lung disease [Unknown]
  - Overdose [Unknown]
  - Myocardial infarction [Fatal]
  - Toxicity to various agents [Unknown]
  - Respiratory failure [Fatal]
  - Arteriosclerosis coronary artery [Unknown]
